FAERS Safety Report 9215634 (Version 2)
Quarter: 2013Q2

REPORT INFORMATION
  Report Type: Report from Study
  Country: US (occurrence: US)
  Receive Date: 20130408
  Receipt Date: 20130415
  Transmission Date: 20140414
  Serious: Yes (Death, Hospitalization, Other)
  Sender: FDA-Public Use
  Company Number: US-PFIZER INC-2013104511

PATIENT
  Age: 52 Year
  Sex: Male
  Weight: 155.4 kg

DRUGS (16)
  1. DOXORUBICIN HCL [Suspect]
     Indication: NEUROFIBROMATOSIS
     Dosage: 135 MG (FIRST DOSE)
     Route: 042
     Dates: start: 20130115, end: 20130226
  2. DOXORUBICIN HCL [Suspect]
     Indication: PERIPHERAL NERVE SHEATH TUMOUR MALIGNANT
  3. PLATELET-DERIVED GROWTH FACTOR RECEPTOR ALPHA POLYPEPTIDE [Suspect]
     Indication: NEUROFIBROMATOSIS
     Dosage: 1075 MG (FIRST DOSE)
     Route: 042
     Dates: start: 20130115, end: 20130305
  4. PLATELET-DERIVED GROWTH FACTOR [Suspect]
     Indication: PERIPHERAL NERVE SHEATH TUMOUR MALIGNANT
  5. DRONABINOL [Concomitant]
     Dosage: UNK
  6. GABAPENTIN [Concomitant]
     Dosage: UNK
  7. PANTOPRAZOLE [Concomitant]
     Dosage: UNK
  8. SENNA [Concomitant]
     Dosage: UNK
  9. OXYCODONE [Concomitant]
     Dosage: UNK
  10. ATIVAN [Concomitant]
     Dosage: UNK
  11. PROMETHAZINE [Concomitant]
     Dosage: UNK
  12. METOCLOPRAMIDE [Concomitant]
     Dosage: UNK
  13. DEXAMETHASONE [Concomitant]
     Dosage: UNK
  14. APREPITANT [Concomitant]
     Dosage: UNK
  15. PROCHLORPERAZINE [Concomitant]
     Dosage: UNK
  16. ONDANSETRON [Concomitant]
     Dosage: UNK

REACTIONS (2)
  - Respiratory failure [Fatal]
  - Back pain [Unknown]
